FAERS Safety Report 6065297-3 (Version None)
Quarter: 2009Q1

REPORT INFORMATION
  Report Type: 
  Country: None (occurrence: None)
  Receive Date: 20090130
  Receipt Date: 20090114
  Transmission Date: 20090719
  Serious: Yes (Other)
  Sender: FDA-Public Use
  Company Number: 2009S1000676

PATIENT
  Age: 49 Year
  Sex: Female

DRUGS (7)
  1. ETOPOSIDE [Suspect]
     Indication: MALIGNANT HYDATIDIFORM MOLE
  2. ANAESTHETIC (OTIDIN /00462701/) [Suspect]
     Indication: DRUG USE FOR UNKNOWN INDICATION
  3. CARBOPLATIN [Suspect]
     Indication: MALIGNANT HYDATIDIFORM MOLE
  4. CISPLATIN [Suspect]
     Indication: MALIGNANT HYDATIDIFORM MOLE
  5. GEMCITABINE [Suspect]
     Indication: MALIGNANT HYDATIDIFORM MOLE
  6. PACLITAXEL [Suspect]
     Indication: MALIGNANT HYDATIDIFORM MOLE
  7. PROPRANOLOL [Concomitant]

REACTIONS (2)
  - DRUG INTERACTION [None]
  - REVERSIBLE POSTERIOR LEUKOENCEPHALOPATHY SYNDROME [None]
